FAERS Safety Report 5182671-8 (Version None)
Quarter: 2006Q4

REPORT INFORMATION
  Report Type: 
  Country: None (occurrence: None)
  Receive Date: 20061220
  Receipt Date: 20060929
  Transmission Date: 20070319
  Serious: Yes (Hospitalization)
  Sender: FDA-Public Use
  Company Number: US-BRISTOL-MYERS SQUIBB COMPANY-13525431

PATIENT
  Age: 77 Year
  Sex: Female
  Weight: 57 kg

DRUGS (6)
  1. ORENCIA [Suspect]
     Indication: RHEUMATOID ARTHRITIS
     Route: 042
     Dates: start: 20060901, end: 20060901
  2. COREG [Suspect]
  3. ASPIRIN [Suspect]
  4. NIZORAL [Concomitant]
  5. PREDNISONE TAB [Concomitant]
  6. NEXIUM [Concomitant]

REACTIONS (3)
  - ASTHMA [None]
  - CARDIAC FAILURE CONGESTIVE [None]
  - MYOCARDIAL INFARCTION [None]
